FAERS Safety Report 9846448 (Version 1)
Quarter: 2014Q1

REPORT INFORMATION
  Report Type: Spontaneous
  Country: US (occurrence: None)
  Receive Date: 20140122
  Receipt Date: 20140122
  Transmission Date: 20141002
  Serious: No
  Sender: FDA-Public Use
  Company Number: 2014AP000244

PATIENT
  Age: 57 Year
  Sex: Female

DRUGS (1)
  1. CITALOPRAM HYDROBROMIDE TABLETS (20MG) [Suspect]
     Indication: ANXIETY
     Dates: start: 20140110

REACTIONS (3)
  - Chills [None]
  - Nausea [None]
  - Headache [None]
